FAERS Safety Report 10167733 (Version 2)
Quarter: 2014Q2

REPORT INFORMATION
  Report Type: Spontaneous
  Country: IT (occurrence: IT)
  Receive Date: 20140512
  Receipt Date: 20140613
  Transmission Date: 20141212
  Serious: Yes (Hospitalization)
  Sender: FDA-Public Use
  Company Number: IT-009507513-1405ITA002577

PATIENT
  Age: 69 Year
  Sex: Female

DRUGS (3)
  1. MIRTAZAPINE [Suspect]
     Indication: DRUG ABUSE
     Dosage: UNK
     Route: 048
     Dates: start: 20130918, end: 20130918
  2. VENLAFAXINE HYDROCHLORIDE [Suspect]
     Indication: DRUG ABUSE
     Dosage: UNK
     Route: 048
     Dates: start: 20130918, end: 20130918
  3. DELORAZEPAM [Suspect]
     Indication: DRUG ABUSE
     Dosage: UNK
     Route: 048
     Dates: start: 20130918, end: 20130918

REACTIONS (2)
  - Drug abuse [Recovering/Resolving]
  - Drug abuse [Recovering/Resolving]
